FAERS Safety Report 24565018 (Version 6)
Quarter: 2024Q4

REPORT INFORMATION
  Report Type: Spontaneous
  Country: CA (occurrence: CA)
  Receive Date: 20241030
  Receipt Date: 20241202
  Transmission Date: 20250114
  Serious: Yes (Hospitalization, Other)
  Sender: PFIZER
  Company Number: CA-PFIZER INC-202400288899

PATIENT
  Age: 30 Year
  Sex: Male

DRUGS (2)
  1. ABRILADA [Suspect]
     Active Substance: ADALIMUMAB-AFZB
     Indication: Crohn^s disease
     Dosage: 160MG, (1DF), AT WEEK 0, 80 MG AT WEEK 2, THEN 40MG Q 2 WEEKS STARTING WEEK 4
     Route: 058
     Dates: start: 20241018, end: 2024
  2. PREDNISONE [Concomitant]
     Active Substance: PREDNISONE
     Dosage: 30 MG, 1X/DAY (OCCLUSIVE DRESSING TECHNIQUE)
     Route: 046
     Dates: start: 20240930

REACTIONS (4)
  - Vomiting [Recovering/Resolving]
  - Dizziness [Recovering/Resolving]
  - Asthenia [Recovering/Resolving]
  - Ileocolectomy [Unknown]

NARRATIVE: CASE EVENT DATE: 20240101
